FAERS Safety Report 15618768 (Version 1)
Quarter: 2018Q4

REPORT INFORMATION
  Report Type: Report from Study
  Country: US (occurrence: US)
  Receive Date: 20181114
  Receipt Date: 20181114
  Transmission Date: 20190205
  Serious: Yes (Other)
  Sender: FDA-Public Use
  Company Number: US-BIOGEN-2018BI00654906

PATIENT
  Sex: Female

DRUGS (1)
  1. TECFIDERA [Suspect]
     Active Substance: DIMETHYL FUMARATE
     Indication: MULTIPLE SCLEROSIS
     Route: 048
     Dates: end: 201807

REACTIONS (9)
  - Precancerous cells present [Unknown]
  - Gastric disorder [Unknown]
  - White blood cell count abnormal [Unknown]
  - Muscle disorder [Not Recovered/Not Resolved]
  - Bladder disorder [Unknown]
  - Cholelithiasis [Unknown]
  - Peripheral swelling [Not Recovered/Not Resolved]
  - Gastrointestinal disorder [Unknown]
  - Erythema [Unknown]
